APPROVED DRUG PRODUCT: AXERT
Active Ingredient: ALMOTRIPTAN MALATE
Strength: EQ 6.25MG BASE **Federal Register determination that product was not discontinued or withdrawn for safety or effectiveness reasons**
Dosage Form/Route: TABLET;ORAL
Application: N021001 | Product #001
Applicant: JANSSEN PHARMACEUTICALS INC
Approved: May 7, 2001 | RLD: Yes | RS: No | Type: DISCN